FAERS Safety Report 9436390 (Version 1)
Quarter: 2013Q3

REPORT INFORMATION
  Report Type: Spontaneous
  Country: US (occurrence: US)
  Receive Date: 20130802
  Receipt Date: 20130802
  Transmission Date: 20140515
  Serious: No
  Sender: FDA-Public Use
  Company Number: US-BIOGENIDEC-2013BI070800

PATIENT
  Age: 50 Year
  Sex: Female

DRUGS (1)
  1. TYSABRI [Suspect]
     Indication: MULTIPLE SCLEROSIS
     Route: 042
     Dates: start: 20130412, end: 20130607

REACTIONS (5)
  - Muscle spasticity [Recovered/Resolved]
  - Muscle spasms [Recovered/Resolved]
  - Poor venous access [Recovered/Resolved]
  - Asthenia [Recovered/Resolved]
  - Infusion site bruising [Recovered/Resolved]
